FAERS Safety Report 9351262 (Version 1)
Quarter: 2013Q2

REPORT INFORMATION
  Report Type: Spontaneous
  Country: SE (occurrence: SE)
  Receive Date: 20130617
  Receipt Date: 20130617
  Transmission Date: 20140414
  Serious: Yes (Other)
  Sender: FDA-Public Use
  Company Number: PHHY2013SE060623

PATIENT
  Age: 77 Year
  Sex: Male

DRUGS (19)
  1. OXYCODONE HYDROCHLORIDE [Suspect]
     Indication: PAIN
     Dosage: 5 MG, BID
  2. VENLAFAXINE [Suspect]
     Dosage: 75 MG, QD
  3. LEVOMEPROMAZINE [Suspect]
     Indication: SCHIZOPHRENIA
     Dosage: 100 MG, QD
  4. PROPIOMAZINE [Suspect]
     Indication: RESTLESSNESS
     Dosage: 50 MG, QD
  5. PROPIOMAZINE [Suspect]
     Indication: INSOMNIA
  6. DIAZEPAM [Suspect]
     Indication: RESTLESSNESS
  7. DIAZEPAM [Suspect]
     Indication: INSOMNIA
  8. ACETYLSALICYLIC ACID [Concomitant]
     Indication: MYOCARDIAL ISCHAEMIA
     Dosage: 75 MG, QD
  9. DIPYRIDAMOL [Concomitant]
     Indication: TRANSIENT ISCHAEMIC ATTACK
     Dosage: 200 MG, BID
  10. ISOSORBIDE MONONITRATE [Concomitant]
     Indication: MYOCARDIAL ISCHAEMIA
     Dosage: 30 MG, QD
  11. SIMVASTATIN [Concomitant]
     Indication: MYOCARDIAL ISCHAEMIA
     Dosage: 40 MG, QD
  12. OMEPRAZOLE [Concomitant]
     Dosage: 20 MG, QD
  13. LEVOTHYROXINE [Concomitant]
     Indication: HYPOTHYROIDISM
     Dosage: 50 UG, QD
  14. CARBAMAZEPINE [Concomitant]
     Indication: GRAND MAL CONVULSION
     Dosage: 400 MG, BID
  15. LAMOTRIGINE [Concomitant]
     Indication: GRAND MAL CONVULSION
     Dosage: 50 MG, QD
  16. CLOZAPINE [Concomitant]
     Indication: SCHIZOPHRENIA
     Dosage: 275 MG, QD
  17. FINASTERIDE [Concomitant]
     Indication: BENIGN PROSTATIC HYPERPLASIA
     Dosage: 5 MG, QD
  18. MACROGOL [Concomitant]
     Indication: CONSTIPATION
     Dosage: 2 DF, QD
  19. NITROGLYCERIN [Concomitant]
     Indication: MYOCARDIAL ISCHAEMIA

REACTIONS (4)
  - Stupor [Unknown]
  - Muscle spasms [Recovered/Resolved]
  - Petit mal epilepsy [Recovering/Resolving]
  - Arthralgia [Unknown]
